FAERS Safety Report 4967231-3 (Version None)
Quarter: 2006Q2

REPORT INFORMATION
  Report Type: 
  Country: None (occurrence: None)
  Receive Date: 20060410
  Receipt Date: 20060213
  Transmission Date: 20061013
  Serious: Yes (Hospitalization, Other)
  Sender: FDA-Public Use
  Company Number: 2006PK00370

PATIENT
  Age: 18153 Day
  Sex: Female

DRUGS (4)
  1. ARIMIDEX [Suspect]
     Indication: BREAST CANCER
     Route: 048
     Dates: start: 20051201, end: 20060216
  2. CALCIUM SANDOZ [Concomitant]
  3. ORTHO EUNOVA IMMUN [Concomitant]
     Indication: IMMUNE ENHANCEMENT THERAPY
  4. CETRIZIN [Concomitant]

REACTIONS (3)
  - ECZEMA [None]
  - NEURODERMATITIS [None]
  - PRURITUS [None]
